FAERS Safety Report 7388520-1 (Version None)
Quarter: 2011Q2

REPORT INFORMATION
  Report Type: 
  Country: None (occurrence: None)
  Receive Date: 20110401
  Receipt Date: 20110325
  Transmission Date: 20111010
  Serious: Yes (Hospitalization, Other)
  Sender: FDA-Public Use
  Company Number: US-JNJFOC-20100808890

PATIENT
  Sex: Male

DRUGS (4)
  1. LEVAQUIN [Suspect]
     Indication: RESPIRATORY DISORDER
     Route: 048
  2. CIPROFLOXACIN [Suspect]
     Indication: RESPIRATORY TRACT INFECTION
     Route: 065
  3. CIPROFLOXACIN [Suspect]
     Indication: SINUSITIS
     Route: 065
  4. CIPROFLOXACIN [Suspect]
     Indication: EAR INFECTION
     Route: 065

REACTIONS (3)
  - EPICONDYLITIS [None]
  - TENDONITIS [None]
  - ROTATOR CUFF SYNDROME [None]
